FAERS Safety Report 9770249 (Version 3)
Quarter: 2014Q1

REPORT INFORMATION
  Report Type: Spontaneous
  Country: US (occurrence: US)
  Receive Date: 20131218
  Receipt Date: 20140319
  Transmission Date: 20141002
  Serious: Yes (Hospitalization)
  Sender: FDA-Public Use
  Company Number: US-B.I. PHARMACEUTICALS,INC./RIDGEFIELD-2013-BI-18724BP

PATIENT
  Sex: Male
  Weight: 88.45 kg

DRUGS (25)
  1. PRADAXA [Suspect]
     Indication: ATRIAL FIBRILLATION
     Dosage: 300 MG
     Route: 048
     Dates: start: 20110427, end: 20111115
  2. PRADAXA [Suspect]
     Indication: ANTICOAGULANT THERAPY
  3. ASPIRIN [Concomitant]
     Dosage: 81 MG
     Route: 048
  4. DIGOXIN [Concomitant]
     Dosage: 0.125 MG
     Route: 048
  5. LASIX [Concomitant]
     Dosage: 40 MG
     Route: 048
  6. LOVAZA [Concomitant]
     Dosage: 2 G
     Route: 048
  7. XOPENEX [Concomitant]
     Indication: WHEEZING
     Route: 055
  8. TOPROL XL [Concomitant]
     Dosage: 200 MG
     Route: 048
  9. DEXILANT [Concomitant]
     Dosage: 60 MG
     Route: 048
  10. KLOR-CON [Concomitant]
     Dosage: 8 MEQ
     Route: 048
  11. PREDNISOLONE [Concomitant]
     Route: 065
  12. ZOCOR [Concomitant]
     Dosage: 80 MG
     Route: 048
  13. SPIRIVA HANDIHALER [Concomitant]
     Dosage: 18 MCG
     Route: 055
  14. CORDARONE [Concomitant]
     Dosage: 200 MG
     Route: 048
  15. COQ10 [Concomitant]
     Route: 048
  16. AVODART [Concomitant]
     Dosage: 0.5 MG
     Route: 048
  17. SLOW-MAG [Concomitant]
     Dosage: 65 MG
     Route: 048
  18. PLAVIX [Concomitant]
     Dosage: 75 MG
     Route: 048
  19. NITRO-DUR [Concomitant]
     Route: 062
  20. FOLBIC [Concomitant]
     Route: 048
  21. ENALAPRIL [Concomitant]
     Route: 065
  22. SYMBICORT [Concomitant]
     Route: 065
  23. VITAMIN D [Concomitant]
     Route: 065
  24. FISH OIL [Concomitant]
     Route: 065
  25. GREEN TEA [Concomitant]
     Route: 065

REACTIONS (4)
  - Gastrointestinal haemorrhage [Unknown]
  - Haemorrhagic anaemia [Unknown]
  - Craniocerebral injury [Unknown]
  - Contusion [Unknown]
